FAERS Safety Report 22155595 (Version 1)
Quarter: 2023Q1

REPORT INFORMATION
  Report Type: Spontaneous
  Country: CN (occurrence: CN)
  Receive Date: 20230330
  Receipt Date: 20230330
  Transmission Date: 20230417
  Serious: Yes (Hospitalization, Other)
  Sender: FDA-Public Use
  Company Number: CN-009507513-2303CHN007909

PATIENT
  Age: 58 Year
  Sex: Female

DRUGS (12)
  1. PEMBROLIZUMAB [Suspect]
     Active Substance: PEMBROLIZUMAB
     Indication: Cervix cancer metastatic
     Dosage: 200 MILLIGRAM, CYCLICAL; THREE CYCLES
     Dates: start: 20210820, end: 20211006
  2. PEMBROLIZUMAB [Suspect]
     Active Substance: PEMBROLIZUMAB
     Indication: Metastases to bladder
  3. PEMBROLIZUMAB [Suspect]
     Active Substance: PEMBROLIZUMAB
     Indication: Adenocarcinoma of the cervix
  4. BEVACIZUMAB [Suspect]
     Active Substance: BEVACIZUMAB
     Indication: Metastases to bladder
     Dosage: UNK UNK, CYCLICAL (DOSE: 400 MG); THREE CYCLES
     Dates: start: 20210820, end: 20211006
  5. BEVACIZUMAB [Suspect]
     Active Substance: BEVACIZUMAB
     Indication: Adenocarcinoma of the cervix
  6. BEVACIZUMAB [Suspect]
     Active Substance: BEVACIZUMAB
     Indication: Cervix cancer metastatic
  7. CARBOPLATIN [Concomitant]
     Active Substance: CARBOPLATIN
     Indication: Cervix cancer metastatic
     Dosage: UNK UNK, CYCLICAL  (DOSE 450 MG); THREE CYCLES
     Dates: start: 20210820, end: 20211006
  8. CARBOPLATIN [Concomitant]
     Active Substance: CARBOPLATIN
     Indication: Metastases to bladder
  9. CARBOPLATIN [Concomitant]
     Active Substance: CARBOPLATIN
     Indication: Adenocarcinoma of the cervix
  10. PACLITAXEL [Concomitant]
     Active Substance: PACLITAXEL
     Indication: Cervix cancer metastatic
     Dosage: 05-JUN-2021 UNK, Q3W (DOSE 210 MG); THREE CYCLES
     Dates: start: 20210605, end: 20210729
  11. PACLITAXEL [Concomitant]
     Active Substance: PACLITAXEL
     Indication: Metastases to bladder
     Dosage: UNK UNK, CYCLICAL (DOSE 210 MG); THREE CYCLES
     Dates: start: 20210820, end: 20211006
  12. PACLITAXEL [Concomitant]
     Active Substance: PACLITAXEL
     Indication: Adenocarcinoma of the cervix

REACTIONS (3)
  - Haemorrhage urinary tract [Recovering/Resolving]
  - Haematuria [Recovering/Resolving]
  - Product use in unapproved indication [Unknown]

NARRATIVE: CASE EVENT DATE: 20210820
